FAERS Safety Report 5942638-6 (Version None)
Quarter: 2008Q4

REPORT INFORMATION
  Report Type: 
  Country: None (occurrence: None)
  Receive Date: 20081103
  Receipt Date: 20081023
  Transmission Date: 20090506
  Serious: Yes (Hospitalization)
  Sender: FDA-Public Use
  Company Number: GXKR2008PL09083

PATIENT
  Age: 22 Month
  Sex: Female

DRUGS (5)
  1. ACETAMINOPHEN [Suspect]
     Indication: RESPIRATORY TRACT INFECTION
     Dosage: 10 MG/KG, TID (3X5)
  2. IBUPROFEN TABLETS [Suspect]
     Indication: PYREXIA
     Dosage: 12- MG / 5ML, 2 DOSES
  3. IBUPROFEN TABLETS [Suspect]
     Indication: RESPIRATORY TRACT INFECTION
     Dosage: 12- MG / 5ML, 2 DOSES
  4. FLUID/ELECTROLYTE REPLACEMENT THERAPY(FLUID/ELECTROLYTE REPLACEMENT TH [Concomitant]
  5. AMOXICILLIN + CLAVULANIC ACID (AMOXICILLIN, CLAVULANIC ACID) [Concomitant]

REACTIONS (5)
  - ANAEMIA [None]
  - ANOREXIA [None]
  - DIARRHOEA [None]
  - GASTRITIS HAEMORRHAGIC [None]
  - HIATUS HERNIA [None]
